FAERS Safety Report 9674932 (Version 6)
Quarter: 2014Q1

REPORT INFORMATION
  Report Type: Report from Study
  Country: US (occurrence: US)
  Receive Date: 20131107
  Receipt Date: 20140117
  Transmission Date: 20141002
  Serious: No
  Sender: FDA-Public Use
  Company Number: US-VERTEX PHARMACEUTICALS INC-2013-010912

PATIENT
  Age: 50 Year
  Sex: Female
  Weight: 90.25 kg

DRUGS (7)
  1. VX-950 (TELAPREVIR) [Suspect]
     Indication: HEPATITIS C
     Dosage: 1125 MG, BID
     Route: 048
     Dates: start: 20131029, end: 20131203
  2. COPEGUS [Suspect]
     Indication: HEPATITIS C
     Dosage: 600 MG, BID
     Dates: start: 20131029
  3. COPEGUS [Suspect]
     Dosage: 600 MG, BID
     Route: 048
     Dates: end: 20131203
  4. PEGINTERFERON [Suspect]
     Indication: HEPATITIS C
     Dosage: 1 INJECTION, QW
     Route: 058
     Dates: start: 20131029, end: 20131204
  5. OXYCODONE [Concomitant]
     Indication: PAIN
     Dosage: 10 MG, PRN
     Route: 048
  6. OXYCODONE [Concomitant]
     Indication: MUSCULOSKELETAL DISCOMFORT
  7. MUSCLE RELAXER [Concomitant]

REACTIONS (7)
  - Injection site bruising [Not Recovered/Not Resolved]
  - Injection site erythema [Not Recovered/Not Resolved]
  - Weight increased [Not Recovered/Not Resolved]
  - Injection site rash [Not Recovered/Not Resolved]
  - Fatigue [Not Recovered/Not Resolved]
  - Drug ineffective [Not Recovered/Not Resolved]
  - Pruritus [Not Recovered/Not Resolved]
